FAERS Safety Report 17608624 (Version 3)
Quarter: 2020Q2

REPORT INFORMATION
  Report Type: Report from Study
  Country: BR (occurrence: BR)
  Receive Date: 20200401
  Receipt Date: 20200615
  Transmission Date: 20200713
  Serious: Yes (Hospitalization)
  Sender: FDA-Public Use
  Company Number: BR-AMGEN-BRASL2020051325

PATIENT
  Age: 66 Year
  Sex: Male

DRUGS (3)
  1. PANTOPRAZOL [PANTOPRAZOLE] [Concomitant]
     Active Substance: PANTOPRAZOLE
     Dosage: UNK
  2. VITAMIN C [Concomitant]
     Active Substance: ASCORBIC ACID
     Dosage: UNK
  3. VECTIBIX [Suspect]
     Active Substance: PANITUMUMAB
     Indication: COLORECTAL CANCER METASTATIC
     Dosage: UNK, EVERY 15 DAYS
     Route: 042
     Dates: start: 20191004

REACTIONS (3)
  - Pruritus [Recovering/Resolving]
  - Skin wound [Recovering/Resolving]
  - Dry skin [Recovering/Resolving]
